FAERS Safety Report 7344532-5 (Version None)
Quarter: 2011Q1

REPORT INFORMATION
  Report Type: 
  Country: None (occurrence: None)
  Receive Date: 20110307
  Receipt Date: 20110307
  Transmission Date: 20110831
  Serious: No
  Sender: FDA-Public Use
  Company Number: None

PATIENT
  Age: 38 Year
  Sex: Female
  Weight: 58.0604 kg

DRUGS (2)
  1. AVELOX [Suspect]
     Indication: INFECTION
     Dosage: 400 MG 1 PILL/DAY FOR 7 PO
     Route: 048
     Dates: start: 20110217, end: 20110219
  2. AVELOX [Suspect]
     Indication: ASPIRATION
     Dosage: 400 MG 1 PILL/DAY FOR 7 PO
     Route: 048
     Dates: start: 20110217, end: 20110219

REACTIONS (15)
  - MUSCULAR WEAKNESS [None]
  - FATIGUE [None]
  - NAUSEA [None]
  - DIARRHOEA [None]
  - TREMOR [None]
  - ANXIETY [None]
  - RETCHING [None]
  - VERTIGO [None]
  - MYALGIA [None]
  - SWOLLEN TONGUE [None]
  - IMMOBILE [None]
  - GAIT DISTURBANCE [None]
  - PANIC REACTION [None]
  - IMPAIRED DRIVING ABILITY [None]
  - DIZZINESS [None]
